FAERS Safety Report 14519165 (Version 1)
Quarter: 2018Q1

REPORT INFORMATION
  Report Type: Spontaneous
  Country: US (occurrence: US)
  Receive Date: 20180209
  Receipt Date: 20180209
  Transmission Date: 20180509
  Serious: Yes (Other)
  Sender: FDA-Public Use
  Company Number: None

PATIENT
  Sex: Male

DRUGS (1)
  1. APRACLONIDINE [Suspect]
     Active Substance: APRACLONIDINE HYDROCHLORIDE
     Indication: GLAUCOMA
     Dosage: ?          QUANTITY:3 DROP(S);?
     Route: 047
     Dates: start: 20170701

REACTIONS (3)
  - Eye pruritus [None]
  - Eye irritation [None]
  - Eye swelling [None]

NARRATIVE: CASE EVENT DATE: 20170701
